FAERS Safety Report 6072314-3 (Version None)
Quarter: 2009Q1

REPORT INFORMATION
  Report Type: 
  Country: None (occurrence: None)
  Receive Date: 20090210
  Receipt Date: 20090203
  Transmission Date: 20090719
  Serious: Yes (Hospitalization, Other)
  Sender: FDA-Public Use
  Company Number: JP-MERCK-0901USA04209

PATIENT
  Age: 67 Year
  Sex: Male
  Weight: 61 kg

DRUGS (3)
  1. HYZAAR [Suspect]
     Indication: HYPERTENSION
     Route: 048
     Dates: start: 20080205, end: 20090104
  2. NORVASC [Concomitant]
     Indication: HYPERTENSION
     Route: 048
     Dates: start: 20071221
  3. UNASYN [Concomitant]
     Route: 042

REACTIONS (2)
  - OROPHARYNGEAL DISCOMFORT [None]
  - PNEUMONIA [None]
